FAERS Safety Report 6152471-0 (Version None)
Quarter: 2009Q2

REPORT INFORMATION
  Report Type: 
  Country: None (occurrence: None)
  Receive Date: 20090413
  Receipt Date: 20090403
  Transmission Date: 20091009
  Serious: Yes (Other)
  Sender: FDA-Public Use
  Company Number: PHHY2009MT12880

PATIENT
  Sex: Female

DRUGS (1)
  1. AREDIA [Suspect]
     Indication: OSTEITIS DEFORMANS
     Dosage: 90 MG EVERY 3 MONTHS
     Dates: start: 20060101

REACTIONS (1)
  - DEAFNESS [None]
